FAERS Safety Report 25493672 (Version 1)
Quarter: 2025Q2

REPORT INFORMATION
  Report Type: Spontaneous
  Country: PL (occurrence: PL)
  Receive Date: 20250630
  Receipt Date: 20250630
  Transmission Date: 20250716
  Serious: Yes (Other)
  Sender: RANBAXY
  Company Number: PL-SUN PHARMACEUTICAL INDUSTRIES LTD-2023R1-418852

PATIENT
  Age: 55 Year
  Sex: Male

DRUGS (5)
  1. CARBAMAZEPINE [Suspect]
     Active Substance: CARBAMAZEPINE
     Indication: Epilepsy
     Route: 065
  2. PHENYTOIN [Suspect]
     Active Substance: PHENYTOIN
     Indication: Epilepsy
     Route: 065
  3. CLONAZEPAM [Suspect]
     Active Substance: CLONAZEPAM
     Indication: Epilepsy
     Route: 065
  4. GABAPENTIN [Suspect]
     Active Substance: GABAPENTIN
     Indication: Epilepsy
     Route: 065
  5. LAMOTRIGINE [Suspect]
     Active Substance: LAMOTRIGINE
     Indication: Epilepsy
     Route: 065

REACTIONS (6)
  - Drug ineffective [Unknown]
  - Somnolence [Unknown]
  - Confusional state [Unknown]
  - Dizziness [Unknown]
  - Ataxia [Unknown]
  - Vision blurred [Unknown]
